FAERS Safety Report 9559531 (Version 1)
Quarter: 2013Q3

REPORT INFORMATION
  Report Type: Spontaneous
  Country: US (occurrence: None)
  Receive Date: 20130925
  Receipt Date: 20130925
  Transmission Date: 20140515
  Serious: Yes (Hospitalization)
  Sender: FDA-Public Use
  Company Number: USA/USA/13/0034699

PATIENT
  Age: 14 Year
  Sex: Female

DRUGS (3)
  1. CITALOPRAM [Suspect]
     Indication: PRODUCT USED FOR UNKNOWN INDICATION
     Route: 048
  2. BUPROPION (BUPROPION) [Suspect]
     Indication: PRODUCT USED FOR UNKNOWN INDICATION
     Dosage: 9 GM, TOTAL, ORAL
     Route: 048
  3. HYDROXYZINE (HYDROXYZINE) [Suspect]
     Indication: PRODUCT USED FOR UNKNOWN INDICATION
     Route: 048

REACTIONS (14)
  - Convulsion [None]
  - Heart rate increased [None]
  - Electrocardiogram QT prolonged [None]
  - Hypokalaemia [None]
  - Electrocardiogram QRS complex prolonged [None]
  - Metabolic acidosis [None]
  - Respiratory acidosis [None]
  - Hypotension [None]
  - Nodal rhythm [None]
  - Hyperlipidaemia [None]
  - Pancreatic enzymes increased [None]
  - Transaminases increased [None]
  - Cardiogenic shock [None]
  - Overdose [None]
